FAERS Safety Report 8161663-0 (Version None)
Quarter: 2012Q1

REPORT INFORMATION
  Report Type: 
  Country: None (occurrence: None)
  Receive Date: 20120224
  Receipt Date: 20120216
  Transmission Date: 20120608
  Serious: Yes (Hospitalization)
  Sender: FDA-Public Use
  Company Number: US-PFIZER INC-2012045571

PATIENT
  Sex: Female
  Weight: 86 kg

DRUGS (1)
  1. DETROL LA [Suspect]
     Dosage: 1X/DAY
     Route: 048

REACTIONS (4)
  - MALAISE [None]
  - MUSCULOSKELETAL PAIN [None]
  - PAIN IN EXTREMITY [None]
  - FALL [None]
